FAERS Safety Report 4912955-7 (Version None)
Quarter: 2006Q1

REPORT INFORMATION
  Report Type: 
  Country: None (occurrence: None)
  Receive Date: 20060210
  Receipt Date: 20060131
  Transmission Date: 20060701
  Serious: Yes (Hospitalization)
  Sender: FDA-Public Use
  Company Number: 2006PV007875

PATIENT
  Age: 57 Year
  Sex: Female

DRUGS (2)
  1. BYETTA [Suspect]
     Indication: DIABETES MELLITUS NON-INSULIN-DEPENDENT
     Dosage: SC
     Route: 058
     Dates: start: 20060101
  2. MULTIPLE MEDICATIONS (NOS) [Concomitant]

REACTIONS (4)
  - DEHYDRATION [None]
  - DYSARTHRIA [None]
  - FEELING DRUNK [None]
  - HYPOAESTHESIA ORAL [None]
